FAERS Safety Report 9949563 (Version 1)
Quarter: 2014Q1

REPORT INFORMATION
  Report Type: Spontaneous
  Country: CA (occurrence: CA)
  Receive Date: 20140304
  Receipt Date: 20140304
  Transmission Date: 20141002
  Serious: Yes (Other)
  Sender: FDA-Public Use
  Company Number: CA-BAYER-2014-028306

PATIENT
  Age: 49 Year
  Sex: Male

DRUGS (5)
  1. AVELOX [Suspect]
     Indication: SINUSITIS
     Dosage: UNK
     Dates: end: 20111216
  2. CONCERTA [Concomitant]
  3. SYMBICORT [Concomitant]
  4. BACLOPHEN [Concomitant]
  5. MORPHINE [Concomitant]

REACTIONS (4)
  - Tendon rupture [None]
  - Tendon rupture [None]
  - Tendon operation [None]
  - Toe amputation [None]
